FAERS Safety Report 15483283 (Version 2)
Quarter: 2018Q4

REPORT INFORMATION
  Report Type: Spontaneous
  Country: CZ (occurrence: CZ)
  Receive Date: 20181010
  Receipt Date: 20181030
  Transmission Date: 20190205
  Serious: Yes (Hospitalization, Other)
  Sender: FDA-Public Use
  Company Number: CZ-B.I. PHARMACEUTICALS,INC./RIDGEFIELD-2018-BI-049515

PATIENT
  Age: 74 Year
  Sex: Male

DRUGS (2)
  1. MILURIT [Concomitant]
     Active Substance: ALLOPURINOL
     Indication: PRODUCT USED FOR UNKNOWN INDICATION
     Route: 065
  2. PRADAXA [Suspect]
     Active Substance: DABIGATRAN ETEXILATE MESYLATE
     Indication: ATRIAL FIBRILLATION
     Route: 048
     Dates: start: 201410, end: 20180909

REACTIONS (6)
  - Pulmonary oedema [Recovered/Resolved]
  - Hypertension [Recovered/Resolved]
  - Renal infarct [Unknown]
  - Cardioversion [Unknown]
  - Peripheral embolism [Recovered/Resolved]
  - Cerebrovascular accident [Recovered/Resolved]

NARRATIVE: CASE EVENT DATE: 201702
